FAERS Safety Report 8159647-1 (Version None)
Quarter: 2012Q1

REPORT INFORMATION
  Report Type: 
  Country: None (occurrence: None)
  Receive Date: 20120216
  Receipt Date: 20120208
  Transmission Date: 20120608
  Serious: Yes (Other)
  Sender: FDA-Public Use
  Company Number: 2012SP007788

PATIENT
  Age: 38 Year
  Sex: Female

DRUGS (3)
  1. SYCREST (ASENAPINE /05706901/) [Suspect]
     Indication: BIPOLAR I DISORDER
     Dosage: 10 MG, BID, SL
     Route: 060
     Dates: start: 20120101, end: 20120101
  2. QUETIAPINE [Concomitant]
  3. LORAZEPAM [Concomitant]

REACTIONS (2)
  - LARYNGEAL OEDEMA [None]
  - OEDEMA [None]
